FAERS Safety Report 12455132 (Version 2)
Quarter: 2016Q3

REPORT INFORMATION
  Report Type: Spontaneous
  Country: ES (occurrence: ES)
  Receive Date: 20160610
  Receipt Date: 20160729
  Transmission Date: 20161109
  Serious: Yes (Death, Hospitalization, Other)
  Sender: FDA-Public Use
  Company Number: ES-ACTAVIS-2016-11913

PATIENT
  Age: 61 Year
  Sex: Male

DRUGS (2)
  1. GEMCITABINE [Suspect]
     Active Substance: GEMCITABINE\GEMCITABINE HYDROCHLORIDE
     Indication: BLADDER NEOPLASM
     Dosage: CYCLICAL
     Route: 065
  2. CISPLATIN (UNKNOWN) [Suspect]
     Active Substance: CISPLATIN
     Indication: BLADDER NEOPLASM
     Dosage: CYCLICAL
     Route: 065

REACTIONS (7)
  - Respiratory failure [Fatal]
  - Anaemia [Unknown]
  - Cardiac failure [Unknown]
  - Renal failure [Unknown]
  - Cyanosis [Not Recovered/Not Resolved]
  - Necrosis [Not Recovered/Not Resolved]
  - Leukocytosis [Unknown]
